FAERS Safety Report 20450753 (Version 1)
Quarter: 2022Q1

REPORT INFORMATION
  Report Type: Spontaneous
  Country: US (occurrence: None)
  Receive Date: 20220209
  Receipt Date: 20220209
  Transmission Date: 20220423
  Serious: Yes (Disabling, Other)
  Sender: FDA-Public Use
  Company Number: None

PATIENT
  Sex: Male
  Weight: 89.1 kg

DRUGS (4)
  1. CANNABIDIOL [Suspect]
     Active Substance: CANNABIDIOL
     Indication: Sleep disorder
     Dosage: FREQUENCY : AT BEDTIME;?
     Route: 048
     Dates: start: 20200628, end: 20220206
  2. OMEPRAZOLE [Concomitant]
     Active Substance: OMEPRAZOLE
  3. VITAMIN D3 [Concomitant]
     Active Substance: CHOLECALCIFEROL
  4. VENLAFAXINE [Concomitant]
     Active Substance: VENLAFAXINE HYDROCHLORIDE

REACTIONS (3)
  - Product advertising issue [None]
  - Gluten sensitivity [None]
  - Condition aggravated [None]
